FAERS Safety Report 5109640-8 (Version None)
Quarter: 2006Q3

REPORT INFORMATION
  Report Type: 
  Country: None (occurrence: None)
  Receive Date: 20060918
  Receipt Date: 20060907
  Transmission Date: 20061208
  Serious: Yes (Other)
  Sender: FDA-Public Use
  Company Number: 14743

PATIENT
  Age: 50 Year
  Sex: Male
  Weight: 68 kg

DRUGS (2)
  1. CARBOPLATIN [Suspect]
     Indication: NON-SMALL CELL LUNG CANCER
     Dosage: 640 MG IV
     Route: 042
     Dates: start: 20060203, end: 20060609
  2. TAXOTERE [Concomitant]

REACTIONS (4)
  - COUGH [None]
  - FLUSHING [None]
  - INFUSION RELATED REACTION [None]
  - PRURITUS GENERALISED [None]
